FAERS Safety Report 20491688 (Version 1)
Quarter: 2022Q1

REPORT INFORMATION
  Report Type: Spontaneous
  Country: US (occurrence: US)
  Receive Date: 20220218
  Receipt Date: 20220218
  Transmission Date: 20220423
  Serious: Yes (Other)
  Sender: FDA-Public Use
  Company Number: US-SUNOVION-2022SUN000463

PATIENT
  Age: 68 Year
  Sex: Male
  Weight: 86.168 kg

DRUGS (3)
  1. LUNESTA [Suspect]
     Active Substance: ESZOPICLONE
     Indication: Insomnia
     Dosage: 3 MG, HS
     Dates: end: 202111
  2. LUNESTA [Suspect]
     Active Substance: ESZOPICLONE
     Dosage: 1 MG
     Route: 048
  3. LUNESTA [Suspect]
     Active Substance: ESZOPICLONE
     Dosage: 1 MG (CHOPPED 3MG TO 1MG)
     Route: 048

REACTIONS (6)
  - Atrial fibrillation [Recovering/Resolving]
  - Heart rate decreased [Recovering/Resolving]
  - Respiratory rate decreased [Recovering/Resolving]
  - Hypotension [Recovering/Resolving]
  - Insomnia [Recovering/Resolving]
  - Wrong technique in product usage process [Unknown]

NARRATIVE: CASE EVENT DATE: 20200901
